FAERS Safety Report 10558008 (Version 2)
Quarter: 2014Q4

REPORT INFORMATION
  Report Type: Spontaneous
  Country: US (occurrence: US)
  Receive Date: 20141031
  Receipt Date: 20141212
  Transmission Date: 20150529
  Serious: Yes (Other)
  Sender: FDA-Public Use
  Company Number: US-ELI_LILLY_AND_COMPANY-US201410008074

PATIENT
  Sex: Male
  Weight: 86.17 kg

DRUGS (1)
  1. HUMALOG [Suspect]
     Active Substance: INSULIN LISPRO
     Indication: TYPE 1 DIABETES MELLITUS
     Dosage: 50 U, QD
     Route: 058
     Dates: start: 1996

REACTIONS (5)
  - Inflammation [Unknown]
  - Pain [Unknown]
  - Drug ineffective [Recovered/Resolved]
  - Ketoacidosis [Unknown]
  - Blood glucose increased [Recovered/Resolved]
